FAERS Safety Report 17830805 (Version 1)
Quarter: 2020Q2

REPORT INFORMATION
  Report Type: Spontaneous
  Country: US (occurrence: US)
  Receive Date: 20200527
  Receipt Date: 20200527
  Transmission Date: 20200714
  Serious: Yes (Hospitalization)
  Sender: FDA-Public Use
  Company Number: US-COVIS PHARMA B.V.-2020COV00209

PATIENT
  Age: 55 Year
  Sex: Male

DRUGS (1)
  1. ZANAFLEX [Suspect]
     Active Substance: TIZANIDINE HYDROCHLORIDE
     Indication: BACK INJURY
     Route: 065

REACTIONS (5)
  - Hypotension [Recovered/Resolved]
  - Pancreatitis acute [Recovered/Resolved]
  - Hyperglycaemic hyperosmolar nonketotic syndrome [Recovered/Resolved]
  - Ileus [Recovered/Resolved]
  - Hypertriglyceridaemia [Recovered/Resolved]
